FAERS Safety Report 8587256-9 (Version None)
Quarter: 2012Q3

REPORT INFORMATION
  Report Type: 
  Country: None (occurrence: None)
  Receive Date: 20120810
  Receipt Date: 20110909
  Transmission Date: 20120928
  Serious: No
  Sender: FDA-Public Use
  Company Number: US-ASTRAZENECA-2011SE54540

PATIENT
  Age: 60 Year
  Sex: Female

DRUGS (15)
  1. COUMADIN [Concomitant]
     Dosage: 5 MG ONCE DAILY WITH 1 MG
     Route: 048
     Dates: start: 20110321
  2. EFFEXOR XR [Concomitant]
     Route: 048
     Dates: start: 20110616
  3. ULTRAM [Concomitant]
     Dosage: AS NEEDED
     Route: 048
     Dates: start: 20110131
  4. PAXIL [Interacting]
     Route: 065
  5. NEXIUM [Concomitant]
     Route: 048
     Dates: start: 20101220
  6. AMBIEN [Concomitant]
     Route: 048
     Dates: start: 20110422
  7. AMITRIPTYLINE HCL [Concomitant]
     Route: 048
     Dates: start: 20110131
  8. TAMOXIFEN CITRATE [Interacting]
     Route: 048
  9. THYROID TAB [Concomitant]
     Dosage: 120 MG QOD ALTERNATING WITH 150 MG QOD
     Route: 048
     Dates: start: 20110520
  10. XANAX [Concomitant]
     Route: 048
     Dates: start: 20110623
  11. THYROID TAB [Concomitant]
     Route: 048
     Dates: start: 20110520
  12. VITAMIN D [Concomitant]
     Dosage: 50000 UNIT EVERY TWO WEEKS
     Route: 048
     Dates: start: 20100616
  13. ARIMIDEX [Suspect]
     Route: 048
  14. LISINOPRIL AND HYDROCHLOROTHIAZIDE [Concomitant]
     Dosage: 20-25 MG TWO TABLETS ONCE DAILY
     Route: 048
     Dates: start: 20110422
  15. LYRICA [Concomitant]
     Route: 048

REACTIONS (3)
  - DRUG INTERACTION [None]
  - OEDEMA PERIPHERAL [None]
  - DRUG HYPERSENSITIVITY [None]
